FAERS Safety Report 16850915 (Version 1)
Quarter: 2019Q3

REPORT INFORMATION
  Report Type: Spontaneous
  Country: PL (occurrence: PL)
  Receive Date: 20190925
  Receipt Date: 20190925
  Transmission Date: 20191005
  Serious: Yes (Other)
  Sender: FDA-Public Use
  Company Number: PL-PFIZER INC-2019404962

PATIENT
  Age: 35 Year
  Sex: Female

DRUGS (4)
  1. CYCLOPHOSPHAMIDE. [Suspect]
     Active Substance: CYCLOPHOSPHAMIDE
     Indication: INVASIVE BREAST CARCINOMA
     Dosage: UNK
     Route: 065
  2. DOXORUBICIN HCL [Suspect]
     Active Substance: DOXORUBICIN HYDROCHLORIDE
     Indication: INVASIVE BREAST CARCINOMA
     Dosage: UNK
     Route: 065
  3. RIBOCICLIB. [Suspect]
     Active Substance: RIBOCICLIB
     Indication: INVASIVE BREAST CARCINOMA
     Dosage: UNK
     Route: 065
  4. LETROZOLE. [Suspect]
     Active Substance: LETROZOLE
     Indication: INVASIVE BREAST CARCINOMA
     Dosage: UNK
     Route: 065

REACTIONS (5)
  - Pleural thickening [Unknown]
  - Lumbar vertebral fracture [Unknown]
  - Pulmonary fibrosis [Unknown]
  - Thoracic vertebral fracture [Unknown]
  - Hepatic calcification [Unknown]
